FAERS Safety Report 15517468 (Version 2)
Quarter: 2018Q4

REPORT INFORMATION
  Report Type: Spontaneous
  Country: US (occurrence: US)
  Receive Date: 20181017
  Receipt Date: 20181031
  Transmission Date: 20190205
  Serious: No
  Sender: FDA-Public Use
  Company Number: US-VERTEX PHARMACEUTICALS-2018-007458

PATIENT
  Age: 2 Year
  Sex: Male

DRUGS (19)
  1. URSODIOL. [Concomitant]
     Active Substance: URSODIOL
     Dosage: 30 MG/4 ML, TID
     Route: 048
  2. FLONASE                            /00908302/ [Concomitant]
     Active Substance: MOMETASONE FUROATE
     Dosage: 1 SPRAY IN EACH NOSTRILS
     Route: 045
  3. CIPROFLOXACIN. [Concomitant]
     Active Substance: CIPROFLOXACIN
     Dosage: UNK
  4. AQUADEKS                           /07679501/ [Concomitant]
     Active Substance: MINERALS\VITAMINS
     Dosage: 2 MILLILITER, QD
     Route: 048
  5. NEXIUM [Concomitant]
     Active Substance: ESOMEPRAZOLE MAGNESIUM
     Dosage: 20 MG, BID
     Route: 048
  6. TOBRAMYCIN. [Concomitant]
     Active Substance: TOBRAMYCIN
     Dosage: 300 MG, BID
     Route: 055
  7. HYPERSAL [Concomitant]
     Dosage: 4 MILLILITER, BID
     Route: 055
  8. ALBUTEROL SULFATE. [Concomitant]
     Active Substance: ALBUTEROL SULFATE
     Dosage: 3 MILLILITER, TID
     Route: 055
  9. CYPROHEPTADINE. [Concomitant]
     Active Substance: CYPROHEPTADINE
     Dosage: 2 MG/2.5 ML AT BEDTIME
     Route: 048
  10. TAMIFLU [Concomitant]
     Active Substance: OSELTAMIVIR PHOSPHATE
     Dosage: 12.5 MG, BID
     Route: 048
  11. CEFDINIR. [Concomitant]
     Active Substance: CEFDINIR
     Dosage: 3.5 MILLILITER, BID
     Route: 048
  12. ORKAMBI [Suspect]
     Active Substance: IVACAFTOR\LUMACAFTOR
     Indication: CYSTIC FIBROSIS
     Dosage: 100/125 MG GRANULES, BID WITH FCF
     Route: 048
     Dates: start: 20180919
  13. CREON [Concomitant]
     Active Substance: PANCRELIPASE AMYLASE\PANCRELIPASE LIPASE\PANCRELIPASE PROTEASE
     Dosage: 4 WITH MEALS, 2 WITH SNACKS AND 3 WITH MEALS DAY
     Route: 048
  14. METOCLOPRAMIDE. [Concomitant]
     Active Substance: METOCLOPRAMIDE
     Indication: VOMITING
     Dosage: 5 MG/5 ML, PRN
     Route: 048
  15. PULMOZYME [Concomitant]
     Active Substance: DORNASE ALFA
     Dosage: 1 MG/ 2.5 ML, QD
     Route: 055
  16. ALBUTEROL SULFATE. [Concomitant]
     Active Substance: ALBUTEROL SULFATE
     Dosage: 2 PUFFS, PRN
     Route: 055
  17. VITAMIN D3 [Concomitant]
     Active Substance: CHOLECALCIFEROL
     Dosage: 1000 UT, QD
     Route: 048
  18. MCT OIL                            /01616601/ [Concomitant]
     Dosage: 15 APPLICATION, BID
     Route: 048
  19. MIRALAX [Concomitant]
     Active Substance: POLYETHYLENE GLYCOL 3350
     Dosage: 1 PACKET, QD
     Route: 048

REACTIONS (4)
  - Cough [Recovered/Resolved]
  - Oropharyngeal pain [Recovered/Resolved]
  - Nasal congestion [Recovered/Resolved]
  - Flatulence [Recovered/Resolved]

NARRATIVE: CASE EVENT DATE: 201809
